FAERS Safety Report 4445029-2 (Version None)
Quarter: 2004Q3

REPORT INFORMATION
  Report Type: 
  Country: None (occurrence: None)
  Receive Date: 20040903
  Receipt Date: 20040818
  Transmission Date: 20050211
  Serious: Yes (Hospitalization)
  Sender: FDA-Public Use
  Company Number: 8007031

PATIENT
  Age: 37 Year
  Sex: Male

DRUGS (9)
  1. KEPPRA [Suspect]
     Indication: CONVULSION
     Dosage: PO
     Route: 048
     Dates: start: 20040401, end: 20040401
  2. KEPPRA [Suspect]
     Indication: CONVULSION
     Dosage: 1000 MG 2/D PO
     Route: 048
     Dates: start: 20040401
  3. COUMADIN [Suspect]
     Indication: CEREBROVASCULAR ACCIDENT
     Dosage: PO
     Route: 048
     Dates: start: 20030901
  4. LOVENOX [Concomitant]
  5. DILANTIN [Concomitant]
  6. ATIVAN [Concomitant]
  7. LEVAQUIN [Concomitant]
  8. FOSPHENYTOIN SODIUM [Concomitant]
  9. VALIUM [Concomitant]

REACTIONS (13)
  - ABDOMINAL PAIN UPPER [None]
  - CATHETER SITE HAEMORRHAGE [None]
  - COMA [None]
  - DRUG INTERACTION [None]
  - ELECTROENCEPHALOGRAM ABNORMAL [None]
  - GRAND MAL CONVULSION [None]
  - HAEMORRHAGIC DIATHESIS [None]
  - INTERNATIONAL NORMALISED RATIO DECREASED [None]
  - INTERNATIONAL NORMALISED RATIO INCREASED [None]
  - NOSOCOMIAL INFECTION [None]
  - PNEUMONIA [None]
  - STOMACH DISCOMFORT [None]
  - TREATMENT NONCOMPLIANCE [None]
